FAERS Safety Report 5860998-1 (Version None)
Quarter: 2008Q3

REPORT INFORMATION
  Report Type: 
  Country: None (occurrence: None)
  Receive Date: 20080827
  Receipt Date: 20080124
  Transmission Date: 20090109
  Serious: No
  Sender: FDA-Public Use
  Company Number: US-ABBOTT-08P-163-0434879-00

PATIENT
  Sex: Female
  Weight: 90.8 kg

DRUGS (6)
  1. NIASPAN [Suspect]
     Indication: HIGH DENSITY LIPOPROTEIN INCREASED
     Route: 048
     Dates: start: 20070101
  2. NIASPAN [Suspect]
     Dosage: NON-COATED
     Route: 048
     Dates: start: 20010101, end: 20070101
  3. GEMFIBROZIL [Concomitant]
     Indication: BLOOD CHOLESTEROL
     Route: 048
  4. AMITRIPTYLINE HCL [Concomitant]
     Indication: DRUG USE FOR UNKNOWN INDICATION
     Route: 048
  5. FISH OIL [Concomitant]
     Indication: DRUG USE FOR UNKNOWN INDICATION
     Route: 048
  6. CALCIUM [Concomitant]
     Indication: DRUG USE FOR UNKNOWN INDICATION
     Route: 048

REACTIONS (2)
  - MUSCULOSKELETAL PAIN [None]
  - TENDONITIS [None]
